FAERS Safety Report 7418334-5 (Version None)
Quarter: 2011Q2

REPORT INFORMATION
  Report Type: 
  Country: None (occurrence: None)
  Receive Date: 20110415
  Receipt Date: 20110407
  Transmission Date: 20111010
  Serious: Yes (Hospitalization, Other)
  Sender: FDA-Public Use
  Company Number: A0919515A

PATIENT
  Age: 59 Year
  Sex: Female
  Weight: 53 kg

DRUGS (2)
  1. WARFARIN [Concomitant]
  2. FLOLAN [Suspect]
     Route: 042
     Dates: start: 20060104

REACTIONS (8)
  - ASCITES [None]
  - URINE OUTPUT DECREASED [None]
  - FLUID RETENTION [None]
  - COR PULMONALE [None]
  - FLUID OVERLOAD [None]
  - PULMONARY ARTERIAL HYPERTENSION [None]
  - RENAL FAILURE [None]
  - PAIN [None]
